FAERS Safety Report 7218829-3 (Version None)
Quarter: 2011Q1

REPORT INFORMATION
  Report Type: 
  Country: None (occurrence: None)
  Receive Date: 20110110
  Receipt Date: 20110105
  Transmission Date: 20110831
  Serious: Yes (Other)
  Sender: FDA-Public Use
  Company Number: US-ABBOTT-11P-163-0695481-00

PATIENT
  Sex: Female
  Weight: 59.02 kg

DRUGS (8)
  1. PHENERGAN [Concomitant]
     Indication: NAUSEA
     Dosage: .5 PILL
     Route: 048
     Dates: start: 20101105
  2. PHENERGAN [Concomitant]
     Indication: INSOMNIA
  3. TYLENOL [Concomitant]
     Indication: HEADACHE
     Dosage: 2 PILL
     Route: 048
     Dates: start: 20101105
  4. HUMIRA [Suspect]
     Indication: CROHN'S DISEASE
     Dates: start: 20101105
  5. CAFFEINE [Concomitant]
     Indication: PRODUCT USED FOR UNKNOWN INDICATION
     Dosage: 1 SERVING SODA
     Route: 048
     Dates: start: 20101105
  6. BUTAL [Concomitant]
     Indication: HEADACHE
     Dosage: 1 PILL
     Route: 048
     Dates: start: 20101105
  7. PRENATAL VITAMINS [Concomitant]
     Indication: PRODUCT USED FOR UNKNOWN INDICATION
     Dosage: 1 PILL
     Route: 048
     Dates: start: 20101105
  8. SUDAFED 12 HOUR [Concomitant]
     Indication: HEADACHE
     Dosage: 2 PILL
     Route: 048
     Dates: start: 20101105

REACTIONS (5)
  - NAUSEA [None]
  - INTRA-UTERINE DEATH [None]
  - ABORTION SPONTANEOUS [None]
  - INSOMNIA [None]
  - HEADACHE [None]
